FAERS Safety Report 18490602 (Version 1)
Quarter: 2020Q4

REPORT INFORMATION
  Report Type: Spontaneous
  Country: DE (occurrence: DE)
  Receive Date: 20201111
  Receipt Date: 20201111
  Transmission Date: 20210114
  Serious: Yes (Other)
  Sender: FDA-Public Use
  Company Number: DE-BIOGEN-2020BI00945309

PATIENT
  Age: 30 Year
  Sex: Female

DRUGS (1)
  1. TECFIDERA [Suspect]
     Active Substance: DIMETHYL FUMARATE
     Indication: MULTIPLE SCLEROSIS
     Route: 048
     Dates: start: 201912, end: 2020

REACTIONS (5)
  - Multiple sclerosis [Unknown]
  - Encephalitis [Recovered/Resolved]
  - Weight increased [Not Recovered/Not Resolved]
  - Depressed mood [Unknown]
  - Drug intolerance [Recovered/Resolved]
